FAERS Safety Report 18685749 (Version 1)
Quarter: 2020Q4

REPORT INFORMATION
  Report Type: Spontaneous
  Country: CH (occurrence: CH)
  Receive Date: 20201231
  Receipt Date: 20201231
  Transmission Date: 20210114
  Serious: Yes (Death, Hospitalization)
  Sender: FDA-Public Use
  Company Number: CH-JNJFOC-20201254233

PATIENT
  Age: 85 Year
  Sex: Male

DRUGS (8)
  1. DEXAMETHASONE. [Suspect]
     Active Substance: DEXAMETHASONE
     Indication: PRODUCT USED FOR UNKNOWN INDICATION
     Dosage: 2 MG, TID
     Route: 048
     Dates: start: 20201120, end: 20201126
  2. TEMESTA [LORAZEPAM] [Concomitant]
     Active Substance: LORAZEPAM
  3. XARELTO [Suspect]
     Active Substance: RIVAROXABAN
     Indication: ATRIAL FIBRILLATION
     Dosage: 20 MG, QD
     Route: 048
     Dates: end: 20201124
  4. ESOMEPRAZOLE. [Concomitant]
     Active Substance: ESOMEPRAZOLE MAGNESIUM
  5. TORASEMIDE [Concomitant]
     Active Substance: TORSEMIDE
  6. DAFALGAN [Concomitant]
     Active Substance: ACETAMINOPHEN
  7. REMERON [Concomitant]
     Active Substance: MIRTAZAPINE
  8. LISINOPRIL. [Concomitant]
     Active Substance: LISINOPRIL

REACTIONS (2)
  - Iliac artery occlusion [Fatal]
  - Peripheral artery occlusion [Fatal]

NARRATIVE: CASE EVENT DATE: 20201124
